FAERS Safety Report 6719975-0 (Version None)
Quarter: 2010Q2

REPORT INFORMATION
  Report Type: 
  Country: None (occurrence: None)
  Receive Date: 20100511
  Receipt Date: 20100430
  Transmission Date: 20101027
  Serious: Yes (Other)
  Sender: FDA-Public Use
  Company Number: FR-GENZYME-POMP-1000932

PATIENT
  Sex: Female
  Weight: 49.5 kg

DRUGS (2)
  1. MYOZYME [Suspect]
     Indication: GLYCOGEN STORAGE DISEASE TYPE II
     Dosage: 20 MG/KG, Q2W
     Route: 042
     Dates: start: 20100430
  2. MYOZYME [Suspect]
     Dosage: 20 MG/KG, Q2W
     Route: 042
     Dates: start: 20090622, end: 20100205

REACTIONS (2)
  - ABORTION SPONTANEOUS [None]
  - DEPRESSION [None]
